FAERS Safety Report 6431323-2 (Version None)
Quarter: 2009Q4

REPORT INFORMATION
  Report Type: 
  Country: None (occurrence: None)
  Receive Date: 20091106
  Receipt Date: 20091026
  Transmission Date: 20100525
  Serious: Yes (Other)
  Sender: FDA-Public Use
  Company Number: US-PFIZER INC-2009289819

PATIENT
  Sex: Female
  Weight: 63.492 kg

DRUGS (6)
  1. CHANTIX [Suspect]
     Indication: SMOKING CESSATION THERAPY
     Dosage: FREQUENCY: 2X/DAY,
     Dates: start: 20090623, end: 20090702
  2. LIPITOR [Concomitant]
     Dosage: 20 MG, UNK
  3. ZYRTEC [Concomitant]
     Indication: HYPERSENSITIVITY
  4. SYNTHROID [Concomitant]
     Dosage: 112 UG, UNK
  5. ACETYLSALICYLIC ACID [Concomitant]
     Dates: end: 20091001
  6. ADVAIR DISKUS 100/50 [Concomitant]
     Dosage: UNK

REACTIONS (3)
  - CARDIAC FLUTTER [None]
  - NIGHTMARE [None]
  - TREMOR [None]
